FAERS Safety Report 4791539-8 (Version None)
Quarter: 2005Q4

REPORT INFORMATION
  Report Type: 
  Country: None (occurrence: None)
  Receive Date: 20051007
  Receipt Date: 20050120
  Transmission Date: 20060501
  Serious: No
  Sender: FDA-Public Use
  Company Number: US-BRISTOL-MYERS SQUIBB COMPANY-12837878

PATIENT
  Sex: Male

DRUGS (1)
  1. AVAPRO [Suspect]

REACTIONS (1)
  - SPERM COUNT DECREASED [None]
